FAERS Safety Report 18387199 (Version 2)
Quarter: 2020Q4

REPORT INFORMATION
  Report Type: Spontaneous
  Country: PT (occurrence: PT)
  Receive Date: 20201015
  Receipt Date: 20201109
  Transmission Date: 20210114
  Serious: Yes (Hospitalization, Other)
  Sender: FDA-Public Use
  Company Number: NVSC2020PT275658

PATIENT
  Age: 26 Year
  Sex: Female

DRUGS (1)
  1. IBUPROFEN. [Suspect]
     Active Substance: IBUPROFEN
     Indication: ANALGESIC THERAPY
     Dosage: 600 MG (2 TABLETS)
     Route: 065

REACTIONS (3)
  - Epistaxis [Recovering/Resolving]
  - Immune thrombocytopenia [Recovering/Resolving]
  - Petechiae [Recovering/Resolving]
